FAERS Safety Report 7901259-6 (Version None)
Quarter: 2011Q4

REPORT INFORMATION
  Report Type: 
  Country: None (occurrence: None)
  Receive Date: 20111108
  Receipt Date: 20111101
  Transmission Date: 20120403
  Serious: Yes (Other)
  Sender: FDA-Public Use
  Company Number: PHHY2011NL96529

PATIENT
  Sex: Female

DRUGS (5)
  1. ZOMETA [Suspect]
     Dosage: 4 MG/5 ML, ONCE 21 DAYS IV 230 ML/H
     Route: 042
     Dates: start: 20111101
  2. OXYCODONE HCL [Concomitant]
  3. OXYCONTIN [Concomitant]
  4. ZOMETA [Suspect]
     Indication: BREAST CANCER METASTATIC
     Dosage: 4 MG/5 ML, ONCE 21 DAYS IV 230 ML/H
     Route: 042
     Dates: start: 20110809
  5. ZOMETA [Suspect]
     Dosage: 4 MG/5 ML, ONCE 21 DAYS IV 230 ML/H
     Route: 042
     Dates: start: 20111011

REACTIONS (2)
  - ASTHENIA [None]
  - GENERAL PHYSICAL HEALTH DETERIORATION [None]
